FAERS Safety Report 10608315 (Version 1)
Quarter: 2014Q4

REPORT INFORMATION
  Report Type: Report from Study
  Country: BR (occurrence: BR)
  Receive Date: 20141125
  Receipt Date: 20141125
  Transmission Date: 20150529
  Serious: Yes (Other)
  Sender: FDA-Public Use
  Company Number: PHHY2014BR151891

PATIENT
  Sex: Female
  Weight: 49.8 kg

DRUGS (4)
  1. GALVUS MET [Suspect]
     Active Substance: METFORMIN HYDROCHLORIDE\VILDAGLIPTIN
     Indication: DIABETES MELLITUS
     Dosage: 850 MG, BID
     Route: 048
  2. METFORMIN [Suspect]
     Active Substance: METFORMIN HYDROCHLORIDE
     Indication: DIABETES MELLITUS
     Dosage: 1 DF (850 MG), BID (AT LUNCH AND AT NIGHT)
     Route: 048
     Dates: start: 201404
  3. DUO-TRAVATAN [Suspect]
     Active Substance: TIMOLOL MALEATE\TRAVOPROST
     Indication: GLAUCOMA
     Dosage: 2 DRP (1 DROP EVERY EYE), QD
     Route: 047
  4. DIAMICRON [Suspect]
     Active Substance: GLICLAZIDE
     Indication: DIABETES MELLITUS
     Dosage: 3 DF, QD
     Route: 048

REACTIONS (6)
  - Visual impairment [Unknown]
  - Eye haemorrhage [Unknown]
  - Blood glucose decreased [Unknown]
  - Cataract [Unknown]
  - Weight decreased [Unknown]
  - Accident [Unknown]
